FAERS Safety Report 12585099 (Version 1)
Quarter: 2016Q3

REPORT INFORMATION
  Report Type: Spontaneous
  Country: GB (occurrence: GB)
  Receive Date: 20160723
  Receipt Date: 20160723
  Transmission Date: 20161109
  Serious: Yes (Hospitalization)
  Sender: FDA-Public Use
  Company Number: GB-ACCORD-042484

PATIENT
  Age: 55 Year

DRUGS (9)
  1. CLOPIDOGREL [Suspect]
     Active Substance: CLOPIDOGREL BISULFATE
     Indication: PRODUCT USED FOR UNKNOWN INDICATION
     Dosage: MORNING
  2. LEVETIRACETAM. [Concomitant]
     Active Substance: LEVETIRACETAM
  3. BETAHISTINE [Concomitant]
     Active Substance: BETAHISTINE
  4. LACTULOSE. [Concomitant]
     Active Substance: LACTULOSE
     Dosage: 3.1-3.7 G/5ML, 8 AM AND 10 PM.
     Route: 048
  5. QUININE [Concomitant]
     Active Substance: QUININE
     Dosage: AT NIGHT
  6. NAPROXEN. [Suspect]
     Active Substance: NAPROXEN
     Indication: BACK PAIN
     Dates: start: 20160214
  7. IRON [Concomitant]
     Active Substance: IRON
  8. ATORVASTATIN [Concomitant]
     Active Substance: ATORVASTATIN
     Dosage: AT NIGHT
  9. EPILIM [Concomitant]
     Active Substance: VALPROATE SODIUM

REACTIONS (6)
  - Haematemesis [Unknown]
  - Back pain [Unknown]
  - Abdominal pain [Unknown]
  - Fracture [Unknown]
  - Urinary tract infection [Unknown]
  - Gastrointestinal haemorrhage [Unknown]
